FAERS Safety Report 9154717 (Version 1)
Quarter: 2013Q1

REPORT INFORMATION
  Report Type: Spontaneous
  Country: US (occurrence: None)
  Receive Date: 20130305
  Receipt Date: 20130305
  Transmission Date: 20140127
  Serious: Yes (Other)
  Sender: FDA-Public Use
  Company Number: None

PATIENT
  Age: 59 Year
  Sex: Male
  Weight: 65.77 kg

DRUGS (2)
  1. AUBAGIO [Suspect]
     Indication: RELAPSING-REMITTING MULTIPLE SCLEROSIS
     Dosage: 14MG DAILY PO
     Route: 048
     Dates: start: 20121214, end: 20130303
  2. NUEDEXTA [Concomitant]

REACTIONS (3)
  - Glossodynia [None]
  - Tongue disorder [None]
  - Ageusia [None]
